FAERS Safety Report 15482242 (Version 1)
Quarter: 2018Q4

REPORT INFORMATION
  Report Type: Spontaneous
  Country: US (occurrence: US)
  Receive Date: 20181003
  Receipt Date: 20181003
  Transmission Date: 20190205
  Serious: Yes (Death, Hospitalization)
  Sender: FDA-Public Use
  Company Number: None

PATIENT
  Age: 36 Year
  Sex: Female
  Weight: 134.4 kg

DRUGS (6)
  1. DAUNORUBICIN [Suspect]
     Active Substance: DAUNORUBICIN
     Dates: end: 20180829
  2. DEXAMETHASONE. [Suspect]
     Active Substance: DEXAMETHASONE
     Dates: end: 20180828
  3. METHOTREXATE. [Suspect]
     Active Substance: METHOTREXATE
     Route: 037
     Dates: end: 20180917
  4. CYTARABINE. [Suspect]
     Active Substance: CYTARABINE
     Route: 037
     Dates: end: 20180808
  5. ONCASPAR [Suspect]
     Active Substance: PEGASPARGASE
     Dates: end: 20180824
  6. VINCRISTINE SULFATE. [Suspect]
     Active Substance: VINCRISTINE SULFATE
     Dates: end: 20180829

REACTIONS (30)
  - Thrombocytopenia [None]
  - Pyrexia [None]
  - Streptococcus test positive [None]
  - Cough [None]
  - Epistaxis [None]
  - Rectal haemorrhage [None]
  - Non-alcoholic steatohepatitis [None]
  - Catheter site haemorrhage [None]
  - Platelet transfusion [None]
  - Vascular device infection [None]
  - Hypotension [None]
  - Somnolence [None]
  - Aspiration [None]
  - Therapy non-responder [None]
  - Cholestasis [None]
  - Renal replacement therapy [None]
  - Endotracheal intubation complication [None]
  - Blood bilirubin increased [None]
  - Hepatic enzyme increased [None]
  - Drug-induced liver injury [None]
  - Haemodialysis [None]
  - Enterococcus test positive [None]
  - Cerebral haemorrhage [None]
  - Acute kidney injury [None]
  - Pulse absent [None]
  - Sepsis [None]
  - Blood culture positive [None]
  - Dialysis [None]
  - Choking [None]
  - Respiratory tract haemorrhage [None]

NARRATIVE: CASE EVENT DATE: 20180924
